FAERS Safety Report 14315982 (Version 1)
Quarter: 2017Q4

REPORT INFORMATION
  Report Type: Spontaneous
  Country: FR (occurrence: FR)
  Receive Date: 20171221
  Receipt Date: 20171221
  Transmission Date: 20180321
  Serious: Yes (Other)
  Sender: FDA-Public Use
  Company Number: FR-MYLANLABS-2017M1080306

PATIENT
  Age: 76 Year
  Sex: Female
  Weight: 106 kg

DRUGS (2)
  1. SUFENTANIL [Concomitant]
     Active Substance: SUFENTANIL
     Indication: SPINAL ANAESTHESIA
     Dosage: 2.5 G, UNK
     Route: 024
  2. BUPIVACAINE. [Suspect]
     Active Substance: BUPIVACAINE
     Indication: SPINAL ANAESTHESIA
     Dosage: 11 MG, TOTAL
     Route: 024

REACTIONS (2)
  - Drug ineffective [Unknown]
  - No adverse event [Unknown]
